FAERS Safety Report 7147895-9 (Version None)
Quarter: 2010Q4

REPORT INFORMATION
  Report Type: 
  Country: None (occurrence: None)
  Receive Date: 20101209
  Receipt Date: 20101130
  Transmission Date: 20110411
  Serious: Yes (Other)
  Sender: FDA-Public Use
  Company Number: JP-JNJFOC-20101202308

PATIENT

DRUGS (5)
  1. RISPERDAL [Suspect]
     Indication: ILL-DEFINED DISORDER
     Route: 048
  2. LENDORMIN [Suspect]
     Indication: ILL-DEFINED DISORDER
     Route: 048
  3. RIVOTRIL [Concomitant]
     Route: 048
  4. RIVOTRIL [Concomitant]
     Route: 048
  5. TASMOLIN [Concomitant]
     Indication: PROPHYLAXIS
     Route: 048

REACTIONS (3)
  - DELUSION [None]
  - HALLUCINATION [None]
  - RESTLESSNESS [None]
